FAERS Safety Report 6786981-X (Version None)
Quarter: 2010Q2

REPORT INFORMATION
  Report Type: 
  Country: None (occurrence: None)
  Receive Date: 20100623
  Receipt Date: 20100615
  Transmission Date: 20101027
  Serious: Yes (Hospitalization)
  Sender: FDA-Public Use
  Company Number: JP-WYE-H15438010

PATIENT
  Age: 65 Year
  Sex: Male
  Weight: 44 kg

DRUGS (8)
  1. ANCARON [Suspect]
     Indication: ATRIAL FIBRILLATION
     Route: 048
     Dates: start: 20100420, end: 20100422
  2. ANCARON [Suspect]
     Indication: VENTRICULAR ARRHYTHMIA
     Route: 050
     Dates: start: 20100423, end: 20100425
  3. ARTIST [Concomitant]
     Dosage: DOSE NOT PROVIDED
     Dates: start: 20100201
  4. MEXITIL [Concomitant]
     Dosage: DOSE NOT PROVIDED
     Dates: start: 20100301
  5. THYRADIN S [Concomitant]
     Dosage: DOSE NOT PROVIDED
     Dates: start: 20100301
  6. LANSOPRAZOLE [Concomitant]
     Dosage: DOSE NOT PROVIDED
     Dates: start: 20100412
  7. CAPTOPRIL [Concomitant]
     Dosage: DOSE NOT PROVIDED
     Dates: start: 20100421
  8. ALDACTONE [Concomitant]
     Dosage: DOSE NOT PROVIDED
     Dates: start: 20100412

REACTIONS (1)
  - HYPERNATRAEMIA [None]
